FAERS Safety Report 10259705 (Version 3)
Quarter: 2014Q3

REPORT INFORMATION
  Report Type: Spontaneous
  Country: CA (occurrence: CA)
  Receive Date: 20140625
  Receipt Date: 20140801
  Transmission Date: 20150326
  Serious: Yes (Hospitalization, Other)
  Sender: FDA-Public Use
  Company Number: 2014SP001949

PATIENT
  Age: 20 Year
  Sex: Female
  Weight: 49 kg

DRUGS (3)
  1. MIN-OVRAL [Concomitant]
     Indication: ORAL CONTRACEPTION
  2. LATUDA [Suspect]
     Active Substance: LURASIDONE HYDROCHLORIDE
     Indication: BIPOLAR II DISORDER
     Route: 048
     Dates: start: 201404, end: 201406
  3. LITHIUM [Concomitant]
     Active Substance: LITHIUM CARBONATE

REACTIONS (12)
  - Renal failure acute [Recovered/Resolved]
  - Pyelonephritis [Recovered/Resolved]
  - Autoimmune disorder [Recovered/Resolved]
  - Polydipsia [Recovered/Resolved]
  - White blood cell count increased [Recovered/Resolved]
  - Migraine [Recovered/Resolved]
  - Polyuria [Recovered/Resolved]
  - Back pain [Recovered/Resolved]
  - Vomiting [Recovered/Resolved]
  - Nausea [Recovered/Resolved]
  - Albumin urine present [Recovered/Resolved]
  - Photosensitivity reaction [Recovered/Resolved]
